FAERS Safety Report 5211878-6 (Version None)
Quarter: 2007Q1

REPORT INFORMATION
  Report Type: 
  Country: None (occurrence: None)
  Receive Date: 20070116
  Receipt Date: 20070116
  Transmission Date: 20070707
  Serious: Yes (Hospitalization)
  Sender: FDA-Public Use
  Company Number: None

PATIENT
  Age: 20 Year
  Sex: Male
  Weight: 72.5755 kg

DRUGS (3)
  1. REGLAN [Suspect]
     Indication: NAUSEA
     Dosage: 10MG  ONCE  IV
     Route: 042
     Dates: start: 20060804
  2. REGLAN [Suspect]
     Indication: VOMITING
     Dosage: 10MG  ONCE  IV
     Route: 042
     Dates: start: 20060804
  3. ZOFRAN [Concomitant]

REACTIONS (1)
  - ATRIAL FIBRILLATION [None]
